FAERS Safety Report 7512001-5 (Version None)
Quarter: 2011Q2

REPORT INFORMATION
  Report Type: 
  Country: None (occurrence: None)
  Receive Date: 20110531
  Receipt Date: 20110519
  Transmission Date: 20111010
  Serious: Yes (Hospitalization)
  Sender: FDA-Public Use
  Company Number: PHHY2011US06692

PATIENT
  Sex: Female
  Weight: 50.35 kg

DRUGS (2)
  1. EXJADE [Suspect]
     Indication: SICKLE CELL ANAEMIA
     Dosage: 2000 MG, DAILY
     Route: 048
     Dates: start: 20070621
  2. EXJADE [Suspect]
     Indication: IRON METABOLISM DISORDER

REACTIONS (1)
  - PNEUMONIA [None]
